FAERS Safety Report 17035841 (Version 1)
Quarter: 2019Q4

REPORT INFORMATION
  Report Type: Spontaneous
  Country: US (occurrence: US)
  Receive Date: 20191114
  Receipt Date: 20191114
  Transmission Date: 20200122
  Serious: Yes (Disabling)
  Sender: FDA-Public Use
  Company Number: None

PATIENT
  Age: 42 Year
  Sex: Female
  Weight: 64.8 kg

DRUGS (6)
  1. CIPROFLOXACIN HCL [Suspect]
     Active Substance: CIPROFLOXACIN HYDROCHLORIDE
     Indication: DIVERTICULITIS
     Dosage: ?          QUANTITY:1 TABLET(S);?
     Route: 048
     Dates: start: 20191107, end: 20191108
  2. METRONIDAZOLE. [Suspect]
     Active Substance: METRONIDAZOLE
     Indication: DIVERTICULITIS
     Dosage: ?          QUANTITY:1 TABLET(S);?
     Route: 048
     Dates: start: 20191107, end: 20191108
  3. FEM REBALANCE [Concomitant]
  4. ADRENEVIVE [Concomitant]
  5. DAILY VITAMIN [Concomitant]
     Active Substance: VITAMINS
  6. FISH OIL CAPSULES [Concomitant]

REACTIONS (6)
  - Hypoaesthesia [None]
  - Arthritis [None]
  - Burning sensation [None]
  - Dizziness [None]
  - Joint noise [None]
  - Paraesthesia [None]

NARRATIVE: CASE EVENT DATE: 20191107
